FAERS Safety Report 9011117 (Version 1)
Quarter: 2013Q1

REPORT INFORMATION
  Report Type: Spontaneous
  Country: CA (occurrence: CA)
  Receive Date: 20130109
  Receipt Date: 20130109
  Transmission Date: 20140127
  Serious: Yes (Hospitalization)
  Sender: FDA-Public Use
  Company Number: CA-US-EMD SERONO, INC.-7186088

PATIENT
  Age: 46 None
  Sex: Female

DRUGS (1)
  1. REBIF [Suspect]
     Indication: MULTIPLE SCLEROSIS
     Route: 058
     Dates: start: 19981113, end: 20121225

REACTIONS (5)
  - Hypertensive crisis [Recovered/Resolved]
  - Abdominal pain [Unknown]
  - Hypotension [Recovered/Resolved]
  - Lymphadenitis [Unknown]
  - Injection site cellulitis [Unknown]
